FAERS Safety Report 9219431 (Version 2)
Quarter: 2013Q2

REPORT INFORMATION
  Report Type: Spontaneous
  Country: US (occurrence: US)
  Receive Date: 20130409
  Receipt Date: 20130415
  Transmission Date: 20140414
  Serious: No
  Sender: FDA-Public Use
  Company Number: US-PFIZER INC-2013107147

PATIENT
  Age: 66 Year
  Sex: Female
  Weight: 89 kg

DRUGS (5)
  1. PREMARIN [Suspect]
     Indication: ATROPHIC VULVOVAGINITIS
     Dosage: DAILY
     Route: 067
     Dates: start: 201212
  2. LEVOTHROID [Concomitant]
     Indication: THYROID DISORDER
     Dosage: 137 UG, DAILY
  3. PROZAC [Concomitant]
     Indication: DEPRESSION
     Dosage: 60 MG, DAILY
  4. ALLEGRA [Concomitant]
     Indication: HYPERSENSITIVITY
     Dosage: 100 MG, DAILY
  5. HYDRODIURIL [Concomitant]
     Indication: HYPERTENSION
     Dosage: 25 MG, DAILY

REACTIONS (2)
  - Weight increased [Recovering/Resolving]
  - Swelling [Unknown]
